FAERS Safety Report 7914830-2 (Version None)
Quarter: 2011Q4

REPORT INFORMATION
  Report Type: 
  Country: None (occurrence: None)
  Receive Date: 20111115
  Receipt Date: 20111102
  Transmission Date: 20120403
  Serious: No
  Sender: FDA-Public Use
  Company Number: US-B.I. PHARMACEUTICALS,INC./RIDGEFIELD-2011-BP-25506BP

PATIENT
  Sex: Female
  Weight: 49.44 kg

DRUGS (9)
  1. CARTIA XT [Concomitant]
     Dosage: 240 MG
  2. COSAMIN DS [Concomitant]
     Indication: ARTHRITIS
  3. CENTRUM SILVER [Concomitant]
     Indication: SUPPLEMENTATION THERAPY
  4. PRADAXA [Suspect]
     Indication: ATRIAL FIBRILLATION
     Dosage: 300 MG
     Route: 048
     Dates: start: 20110701
  5. CALCIUM [Concomitant]
     Indication: SUPPLEMENTATION THERAPY
  6. MULTIVITAMIN [Concomitant]
     Indication: SUPPLEMENTATION THERAPY
  7. VITAMIN D [Concomitant]
     Indication: SUPPLEMENTATION THERAPY
  8. BIOTENE [Concomitant]
     Indication: SUPPLEMENTATION THERAPY
  9. LEVOTHYROXINE SODIUM [Concomitant]
     Dosage: 75 MCG

REACTIONS (2)
  - BLOOD TRIGLYCERIDES INCREASED [None]
  - HIGH DENSITY LIPOPROTEIN INCREASED [None]
